FAERS Safety Report 17532552 (Version 1)
Quarter: 2020Q1

REPORT INFORMATION
  Report Type: Spontaneous
  Country: US (occurrence: US)
  Receive Date: 20200312
  Receipt Date: 20200312
  Transmission Date: 20200409
  Serious: Yes (Death, Other)
  Sender: FDA-Public Use
  Company Number: US-TASMAN PHARMA, INC.-2020TSM00089

PATIENT
  Sex: Male
  Weight: 65.22 kg

DRUGS (4)
  1. LEVSIN [Concomitant]
     Active Substance: HYOSCYAMINE SULFATE
     Dosage: 0.125 MG, EVERY 4 HOURS AS NEEDED
     Route: 048
  2. MORPHINE SULFATE. [Concomitant]
     Active Substance: MORPHINE SULFATE
     Dosage: 10 MG (0.5 ML), EVERY 1 HOUR AS NEEDED
  3. CLOZAPINE. [Suspect]
     Active Substance: CLOZAPINE
     Indication: DEMENTIA
     Dosage: 25 MG, 1X/DAY AT BEDTIME
  4. CLOZAPINE. [Suspect]
     Active Substance: CLOZAPINE
     Indication: BEHAVIOUR DISORDER

REACTIONS (3)
  - Hospice care [Not Recovered/Not Resolved]
  - Off label use [Recovered/Resolved]
  - Cardio-respiratory arrest [Fatal]
